FAERS Safety Report 5406885-4 (Version None)
Quarter: 2007Q3

REPORT INFORMATION
  Report Type: 
  Country: None (occurrence: None)
  Receive Date: 20070802
  Receipt Date: 20070723
  Transmission Date: 20080115
  Serious: Yes (Life-Threatening)
  Sender: FDA-Public Use
  Company Number: GXKR2007GB06331

PATIENT
  Age: 44 Year
  Sex: Female
  Weight: 60 kg

DRUGS (6)
  1. METRONIDAZOLE [Suspect]
     Indication: WHITE BLOOD CELL COUNT INCREASED
     Dosage: 400 MG, ORAL
     Route: 048
     Dates: start: 20070704, end: 20070704
  2. CEPHRADINE [Suspect]
     Indication: WHITE BLOOD CELL COUNT INCREASED
     Dosage: 500 MG, ORAL
     Route: 048
  3. DIAZEPAM [Concomitant]
  4. NITRAZEPAM [Concomitant]
  5. OMEPRAZOLE [Concomitant]
  6. QUININE SULFATE [Concomitant]

REACTIONS (1)
  - ANAPHYLACTIC REACTION [None]
